FAERS Safety Report 5341319-X (Version None)
Quarter: 2007Q2

REPORT INFORMATION
  Report Type: 
  Country: None (occurrence: None)
  Receive Date: 20070524
  Receipt Date: 20070508
  Transmission Date: 20071010
  Serious: Yes (Hospitalization)
  Sender: FDA-Public Use
  Company Number: 2250051-2007-00252

PATIENT
  Sex: Female

DRUGS (2)
  1. RHOGAM [Suspect]
     Indication: PREGNANCY
     Dosage: 300 UG 5 IM
     Route: 030
     Dates: start: 20070504
  2. RHOGAM [Suspect]
     Indication: PREGNANCY
     Dosage: 300 UG 10 IV
     Route: 042
     Dates: start: 20070505

REACTIONS (3)
  - INCORRECT ROUTE OF DRUG ADMINISTRATION [None]
  - PHARMACEUTICAL PRODUCT COMPLAINT [None]
  - PYREXIA [None]
